FAERS Safety Report 6863205-6 (Version None)
Quarter: 2010Q3

REPORT INFORMATION
  Report Type: 
  Country: None (occurrence: None)
  Receive Date: 20100721
  Receipt Date: 20100715
  Transmission Date: 20110219
  Serious: Yes (Disabling)
  Sender: FDA-Public Use
  Company Number: GB-ABBOTT-10P-167-0653751-00

PATIENT
  Age: 88 Year
  Sex: Male

DRUGS (12)
  1. EPILIM CHRONO [Suspect]
     Indication: EPILEPSY
     Dates: start: 20031006
  2. EPILIM CHRONO [Suspect]
     Route: 048
     Dates: end: 20090910
  3. EPILIM CHRONO [Suspect]
     Route: 048
     Dates: start: 20090910
  4. LEVOTHYROXINE SODIUM [Concomitant]
     Indication: PRODUCT USED FOR UNKNOWN INDICATION
  5. ACETAMINOPHEN AND CODEINE PHOSPHATE [Concomitant]
     Indication: PRODUCT USED FOR UNKNOWN INDICATION
  6. LANSOPRAZOLE [Concomitant]
     Indication: PRODUCT USED FOR UNKNOWN INDICATION
  7. SALMETEROL+FLUTICASONE [Concomitant]
     Indication: PRODUCT USED FOR UNKNOWN INDICATION
  8. RISEDRONATE SODIUM [Concomitant]
     Indication: PRODUCT USED FOR UNKNOWN INDICATION
  9. FUROSEMIDE [Concomitant]
     Indication: PRODUCT USED FOR UNKNOWN INDICATION
  10. IPRATROPIUM BROMIDE [Concomitant]
     Indication: PRODUCT USED FOR UNKNOWN INDICATION
  11. CALCIUM CARBONATE+COLECALCIFEROL [Concomitant]
     Indication: PRODUCT USED FOR UNKNOWN INDICATION
  12. SALAMOL [Concomitant]
     Indication: PRODUCT USED FOR UNKNOWN INDICATION

REACTIONS (9)
  - ABASIA [None]
  - ASTHENIA [None]
  - DEPRESSION [None]
  - INCONTINENCE [None]
  - MALAISE [None]
  - PREMATURE AGEING [None]
  - TREMOR [None]
  - UNDERDOSE [None]
  - WEIGHT DECREASED [None]
